FAERS Safety Report 24083065 (Version 1)
Quarter: 2024Q3

REPORT INFORMATION
  Report Type: Spontaneous
  Country: US (occurrence: US)
  Receive Date: 20240712
  Receipt Date: 20240712
  Transmission Date: 20241017
  Serious: No
  Sender: TEVA
  Company Number: US-TEVA-VS-3218110

PATIENT
  Sex: Female

DRUGS (1)
  1. NIZATIDINE [Suspect]
     Active Substance: NIZATIDINE
     Indication: Product used for unknown indication
     Route: 065

REACTIONS (1)
  - Exposure to allergen [Unknown]

NARRATIVE: CASE EVENT DATE: 20240101
